FAERS Safety Report 8439483 (Version 5)
Quarter: 2012Q4

REPORT INFORMATION
  Report Type: 
  Country: IE (occurrence: IE)
  Receive Date: 20120302
  Receipt Date: 20120920
  Transmission Date: 20130627
  Serious: Yes (Death, Hospitalization, Other)
  Sender: FDA-Public Use
  Company Number: PHFR2012IE001466

PATIENT
  Age: 76 Year
  Sex: Female

DRUGS (2)
  1. CLOZARIL [Suspect]
     Indication: SCHIZOPHRENIA
     Route: 048
     Dates: start: 20030905
  2. CLOZARIL [Suspect]
     Dosage: 600 mg, UNK
     Route: 048

REACTIONS (6)
  - Respiratory disorder [Fatal]
  - Terminal state [Not Recovered/Not Resolved]
  - Chronic obstructive pulmonary disease [Not Recovered/Not Resolved]
  - Bronchopneumonia [Not Recovered/Not Resolved]
  - Feeling abnormal [Unknown]
  - General physical health deterioration [None]
